FAERS Safety Report 14119269 (Version 3)
Quarter: 2018Q2

REPORT INFORMATION
  Report Type: Spontaneous
  Country: US (occurrence: US)
  Receive Date: 20171024
  Receipt Date: 20180423
  Transmission Date: 20180711
  Serious: No
  Sender: FDA-Public Use
  Company Number: US-PFIZER INC-2017452428

PATIENT
  Age: 78 Year
  Sex: Female
  Weight: 66 kg

DRUGS (10)
  1. IBRANCE [Suspect]
     Active Substance: PALBOCICLIB
     Dosage: 100 MG, UNK (FOR 21 DAYS)
     Route: 048
     Dates: start: 20180411
  2. LEVOTHYROXINE. [Concomitant]
     Active Substance: LEVOTHYROXINE
     Dosage: UNK
     Dates: start: 1982
  3. FULVESTRANT. [Suspect]
     Active Substance: FULVESTRANT
     Dosage: UNK, MONTHLY
  4. CALCIUM [Concomitant]
     Active Substance: CALCIUM
     Dosage: UNK (TAKING THESE FOR YEARS)
  5. BENADRYL [Concomitant]
     Active Substance: DIPHENHYDRAMINE HYDROCHLORIDE
     Indication: PRURITUS
     Dosage: UNK, 1X/DAY
  6. IBRANCE [Suspect]
     Active Substance: PALBOCICLIB
     Indication: BREAST CANCER METASTATIC
     Dosage: 100 MG, CYCLIC (WENT OFF OF IT ON 16OCT2017 FOR HER NORMAL 1 WEEK OFF)
     Route: 048
     Dates: start: 201709
  7. HYDROCHLOROTHIAZIDE. [Concomitant]
     Active Substance: HYDROCHLOROTHIAZIDE
     Indication: BLOOD PRESSURE MEASUREMENT
     Dosage: UNK
  8. ESOMEPRAZOLE [Concomitant]
     Active Substance: ESOMEPRAZOLE
     Dosage: UNK (TAKING THIS FOR A FEW MONTHS)
     Dates: start: 2017
  9. VITAMIN B12 [Concomitant]
     Active Substance: CYANOCOBALAMIN
     Dosage: UNK (TAKING THIS FOR A FEW YEARS)
  10. VITAMIN D [Concomitant]
     Active Substance: CHOLECALCIFEROL
     Dosage: UNK (TAKING THESE FOR YEARS)

REACTIONS (2)
  - Pruritus [Recovering/Resolving]
  - Lacrimation increased [Recovered/Resolved]

NARRATIVE: CASE EVENT DATE: 201710
